FAERS Safety Report 6921568-7 (Version None)
Quarter: 2010Q3

REPORT INFORMATION
  Report Type: 
  Country: None (occurrence: None)
  Receive Date: 20100812
  Receipt Date: 20100730
  Transmission Date: 20110219
  Serious: Yes (Other)
  Sender: FDA-Public Use
  Company Number: US-ELI_LILLY_AND_COMPANY-US201006004302

PATIENT
  Sex: Female
  Weight: 68.027 kg

DRUGS (6)
  1. EVISTA [Suspect]
     Indication: OSTEOPOROSIS
     Dosage: UNK, UNK
     Dates: end: 20100720
  2. CALCITONIN [Concomitant]
     Dosage: UNK, UNK
     Dates: end: 20050101
  3. ACTONEL [Concomitant]
     Dosage: UNK, UNK
     Dates: start: 20050101
  4. ATENOLOL [Concomitant]
     Dosage: 25 MG, UNK
  5. HYDROCHLOROTHIAZIDE [Concomitant]
     Dosage: 25 MG, UNK
  6. NEXIUM [Concomitant]
     Dosage: 40 MG, UNK

REACTIONS (5)
  - FALL [None]
  - FEMUR FRACTURE [None]
  - FRACTURE [None]
  - RADIUS FRACTURE [None]
  - ULNA FRACTURE [None]
